FAERS Safety Report 18024810 (Version 1)
Quarter: 2020Q3

REPORT INFORMATION
  Report Type: Spontaneous
  Country: US (occurrence: US)
  Receive Date: 20200715
  Receipt Date: 20200715
  Transmission Date: 20201103
  Serious: No
  Sender: FDA-Public Use
  Company Number: None

PATIENT
  Age: 59 Year
  Sex: Female
  Weight: 91 kg

DRUGS (1)
  1. HERCEPTIN [Suspect]
     Active Substance: TRASTUZUMAB
     Indication: BREAST CANCER
     Dosage: ?          OTHER FREQUENCY:Q21DAYS;?
     Route: 042
     Dates: start: 20200715, end: 20200715

REACTIONS (3)
  - Headache [None]
  - Chills [None]
  - Wheezing [None]

NARRATIVE: CASE EVENT DATE: 20200715
